FAERS Safety Report 4949688-7 (Version None)
Quarter: 2006Q1

REPORT INFORMATION
  Report Type: 
  Country: None (occurrence: None)
  Receive Date: 20060315
  Receipt Date: 20060224
  Transmission Date: 20060701
  Serious: Yes (Other)
  Sender: FDA-Public Use
  Company Number: US200603000430

PATIENT
  Age: 45 Year

DRUGS (1)
  1. CYMBALTA [Suspect]
     Dosage: 30 MG,

REACTIONS (1)
  - BLOOD PRESSURE INCREASED [None]
